FAERS Safety Report 13205796 (Version 1)
Quarter: 2017Q1

REPORT INFORMATION
  Report Type: Spontaneous
  Country: BR (occurrence: BR)
  Receive Date: 20170209
  Receipt Date: 20170209
  Transmission Date: 20170428
  Serious: Yes (Other)
  Sender: FDA-Public Use
  Company Number: BR-GILEAD-2017-0257012

PATIENT
  Age: 74 Year
  Sex: Male
  Weight: 74 kg

DRUGS (8)
  1. OMEPRAZOL                          /00661201/ [Concomitant]
     Active Substance: OMEPRAZOLE
  2. RIBAVIRINE [Concomitant]
     Active Substance: RIBAVIRIN
     Dosage: 750 MG, UNK
     Dates: start: 20160803, end: 20161018
  3. SOVALDI [Suspect]
     Active Substance: SOFOSBUVIR
     Indication: HEPATITIS C
     Dosage: 400 MG, QD
     Route: 048
     Dates: start: 20160803, end: 20161018
  4. RIBAVIRINE [Concomitant]
     Active Substance: RIBAVIRIN
     Dosage: 500 MG, UNK
     Dates: start: 20160803, end: 20161018
  5. LEVOTHYROXINE. [Concomitant]
     Active Substance: LEVOTHYROXINE
  6. FUROSEMIDE. [Concomitant]
     Active Substance: FUROSEMIDE
  7. CLEXANE [Concomitant]
     Active Substance: ENOXAPARIN SODIUM
     Dosage: UNK
     Dates: start: 201609
  8. SPIRONOLACTONE. [Concomitant]
     Active Substance: SPIRONOLACTONE

REACTIONS (8)
  - Pain [Unknown]
  - Peripheral swelling [Unknown]
  - Muscle swelling [Unknown]
  - Myalgia [Recovered/Resolved]
  - Joint swelling [Unknown]
  - Thrombosis [Unknown]
  - Erythema [Unknown]
  - Arthralgia [Recovered/Resolved]

NARRATIVE: CASE EVENT DATE: 20160805
